FAERS Safety Report 4720835-5 (Version None)
Quarter: 2005Q3

REPORT INFORMATION
  Report Type: 
  Country: None (occurrence: None)
  Receive Date: 20050721
  Receipt Date: 20050706
  Transmission Date: 20060218
  Serious: Yes (Hospitalization)
  Sender: FDA-Public Use
  Company Number: CA-BOEHRINGER INGELHEIM PHARMACEUTICALS, INC.-2005-CN-00785CN

PATIENT
  Sex: Male
  Weight: 58 kg

DRUGS (3)
  1. TIPRANAVIR + RITONAVIR CO-ADMIN [Suspect]
     Indication: HIV INFECTION
     Dosage: TPV 1000 / RTV 400
     Route: 048
     Dates: start: 20050127
  2. ENFURVITIDE (T-20) [Concomitant]
     Indication: HIV INFECTION
     Route: 058
     Dates: start: 20050127
  3. TENOFOVIR [Concomitant]
     Indication: HIV INFECTION
     Route: 048
     Dates: start: 20050127

REACTIONS (1)
  - ASTHMA [None]
